FAERS Safety Report 9415230 (Version 3)
Quarter: 2013Q3

REPORT INFORMATION
  Report Type: Spontaneous
  Country: US (occurrence: US)
  Receive Date: 20130723
  Receipt Date: 20130913
  Transmission Date: 20140515
  Serious: Yes (Other)
  Sender: FDA-Public Use
  Company Number: US-PFIZER INC-2013214746

PATIENT
  Age: 71 Year
  Sex: Male
  Weight: 81.63 kg

DRUGS (9)
  1. LYRICA [Suspect]
     Indication: PAIN
     Dosage: 600 MG, 2X/DAY
  2. LYRICA [Suspect]
     Indication: PAIN IN EXTREMITY
     Dosage: 300 MG, 2X/DAY
  3. LYRICA [Suspect]
     Indication: NERVE INJURY
  4. METHADONE [Suspect]
     Dosage: UNK
  5. SINGULAIR [Concomitant]
     Indication: CHRONIC OBSTRUCTIVE PULMONARY DISEASE
     Dosage: 10 MG, DAILY
  6. ALBUTEROL SULFATE [Concomitant]
     Indication: CHRONIC OBSTRUCTIVE PULMONARY DISEASE
     Dosage: 3 MG, 5X/DAY
  7. LISINOPRIL [Concomitant]
     Indication: HYPERTENSION
     Dosage: 20 MG, DAILY
  8. SYMBICORT [Concomitant]
     Indication: CHRONIC OBSTRUCTIVE PULMONARY DISEASE
     Dosage: 2 DF (TWO PUFFS, STRENGTH:160/4.5MG), 2X/DAY
  9. SYNTHROID [Concomitant]
     Indication: THYROID DISORDER
     Dosage: 150 MG, DAILY

REACTIONS (5)
  - Intentional drug misuse [Unknown]
  - Gastric perforation [Unknown]
  - Pain in extremity [Unknown]
  - Scrotal pain [Unknown]
  - Drug ineffective [Unknown]
